FAERS Safety Report 5800809-3 (Version None)
Quarter: 2008Q3

REPORT INFORMATION
  Report Type: 
  Country: None (occurrence: None)
  Receive Date: 20080703
  Receipt Date: 20080627
  Transmission Date: 20090109
  Serious: Yes (Death)
  Sender: FDA-Public Use
  Company Number: CA-MERCK-0806CAN00182

PATIENT
  Age: 51 Year
  Sex: Female

DRUGS (7)
  1. JANUVIA [Suspect]
     Indication: TYPE 2 DIABETES MELLITUS
     Route: 048
     Dates: start: 20080409, end: 20080413
  2. SPIRONOLACTONE [Concomitant]
     Route: 065
  3. METFORMIN [Concomitant]
     Route: 065
  4. LISINOPRIL [Concomitant]
     Route: 065
  5. GLICLAZIDE [Concomitant]
     Route: 065
  6. FENOFIBRATE [Concomitant]
     Route: 065
  7. CYPROTERONE ACETATE AND ETHINYL ESTRADIOL [Concomitant]
     Route: 065

REACTIONS (1)
  - SUDDEN DEATH [None]
